FAERS Safety Report 9660539 (Version 2)
Quarter: 2014Q1

REPORT INFORMATION
  Report Type: Spontaneous
  Country: US (occurrence: US)
  Receive Date: 20131031
  Receipt Date: 20140217
  Transmission Date: 20141002
  Serious: Yes (Other)
  Sender: FDA-Public Use
  Company Number: US-NOVOPROD-390800

PATIENT
  Age: 45 Year
  Sex: Male
  Weight: 88.89 kg

DRUGS (12)
  1. VICTOZA [Suspect]
     Indication: TYPE 2 DIABETES MELLITUS
     Dosage: 1.2 MG - 1.8 MG, QD
     Route: 058
     Dates: start: 20100910
  2. GLIPIZIDE [Concomitant]
     Indication: TYPE 2 DIABETES MELLITUS
     Dosage: 4 MG, BID
     Route: 048
  3. ACTOS [Concomitant]
     Indication: TYPE 2 DIABETES MELLITUS
     Dosage: 30 MG, QD
     Route: 048
     Dates: end: 201307
  4. LOSARTAN [Concomitant]
     Indication: HYPERTENSION
     Dosage: 50 MG, QD
     Route: 048
     Dates: end: 20130526
  5. VASOTEC                            /00574902/ [Concomitant]
     Indication: HYPERTENSION
     Dosage: UNK
     Route: 048
  6. VITAMIN D3 [Concomitant]
     Indication: VITAMIN D DEFICIENCY
     Dosage: 400 IU, QD
     Route: 048
     Dates: end: 20130526
  7. SILYBUM MARIANUM [Concomitant]
     Indication: PRODUCT USED FOR UNKNOWN INDICATION
     Dosage: UNK
     Route: 048
  8. HYDROXYZINE [Concomitant]
     Indication: PRURITUS
     Dosage: 25 MG, TID, PRN
     Route: 048
  9. URSODIOL [Concomitant]
     Indication: PRODUCT USED FOR UNKNOWN INDICATION
     Dosage: 300 MG QD HS
  10. CHROMAX [Concomitant]
     Indication: PRODUCT USED FOR UNKNOWN INDICATION
     Dosage: TAKE AS DIRECTED DAILY
     Dates: end: 20130526
  11. GLIMEPIRIDE [Concomitant]
     Indication: TYPE 2 DIABETES MELLITUS
     Dosage: 2 MG, BID (1TABLETWITH BREAKFAST OR THE FIRST MAIN MEAL OF THE DAY TWICE A DAY)
     Route: 048
  12. FLAXSEED OIL [Concomitant]
     Indication: PRODUCT USED FOR UNKNOWN INDICATION
     Dosage: 1000 MG AS DIRECTED
     Route: 048
     Dates: end: 20130526

REACTIONS (2)
  - Hepatic cirrhosis [Recovering/Resolving]
  - Blood glucose increased [Recovering/Resolving]
